FAERS Safety Report 8486905-3 (Version None)
Quarter: 2012Q3

REPORT INFORMATION
  Report Type: 
  Country: None (occurrence: None)
  Receive Date: 20120704
  Receipt Date: 20120629
  Transmission Date: 20120928
  Serious: Yes (Other)
  Sender: FDA-Public Use
  Company Number: US-BAYER-2012-065495

PATIENT

DRUGS (1)
  1. RID 1-2-3 SYSTEM [Suspect]
     Dosage: UNK

REACTIONS (4)
  - THROAT TIGHTNESS [None]
  - EYE SWELLING [None]
  - SNEEZING [None]
  - URTICARIA [None]
